FAERS Safety Report 7278705-7 (Version None)
Quarter: 2011Q1

REPORT INFORMATION
  Report Type: 
  Country: None (occurrence: None)
  Receive Date: 20110207
  Receipt Date: 20110125
  Transmission Date: 20110831
  Serious: Yes (Hospitalization, Other)
  Sender: FDA-Public Use
  Company Number: GXKR2011DK00732

PATIENT
  Sex: Female

DRUGS (2)
  1. LEVONORGESTREL + ETHINYL ESTRADIOL [Suspect]
  2. WARFARIN SODIUM [Suspect]

REACTIONS (6)
  - MENTAL DISORDER [None]
  - LOSS OF CONSCIOUSNESS [None]
  - CHEST PAIN [None]
  - FIBRIN D DIMER INCREASED [None]
  - WHITE BLOOD CELL COUNT INCREASED [None]
  - PULMONARY EMBOLISM [None]
